FAERS Safety Report 5918288-4 (Version None)
Quarter: 2008Q4

REPORT INFORMATION
  Report Type: 
  Country: None (occurrence: None)
  Receive Date: 20081010
  Receipt Date: 20081003
  Transmission Date: 20090506
  Serious: Yes (Other)
  Sender: FDA-Public Use
  Company Number: CHPA2008US16628

PATIENT
  Age: 7 Year
  Sex: Male
  Weight: 30.4 kg

DRUGS (2)
  1. TRIAMINIC DAY TIME COLD + COUGH (NCH) (DEXTROMETHORPHAN HYDROBROMIDE, [Suspect]
     Indication: NASOPHARYNGITIS
     Dosage: 2 TSP, ONCE/SINGLE, ORAL
     Route: 048
     Dates: start: 20081002, end: 20081002
  2. INSULIN [Concomitant]

REACTIONS (1)
  - BLOOD GLUCOSE INCREASED [None]
